FAERS Safety Report 5635106-2 (Version None)
Quarter: 2008Q1

REPORT INFORMATION
  Report Type: 
  Country: None (occurrence: None)
  Receive Date: 20080222
  Receipt Date: 20080211
  Transmission Date: 20080703
  Serious: Yes (Life-Threatening, Other)
  Sender: FDA-Public Use
  Company Number: GB-PFIZER INC-2008013519

PATIENT
  Age: 20 Year
  Sex: Female

DRUGS (3)
  1. CHANTIX [Suspect]
     Route: 048
     Dates: start: 20080117, end: 20080129
  2. NORGESTIMATE AND ETHINYL ESTRADIOL [Concomitant]
     Dosage: FREQ:ONE DOSE DAILY
     Route: 048
  3. TRANEXAMIC ACID [Concomitant]
     Route: 048

REACTIONS (5)
  - ANXIETY [None]
  - BREAST PAIN [None]
  - NIGHTMARE [None]
  - PAIN [None]
  - SUICIDAL IDEATION [None]
